FAERS Safety Report 9534183 (Version 2)
Quarter: 2013Q3

REPORT INFORMATION
  Report Type: Report from Study
  Country: US (occurrence: US)
  Receive Date: 20130918
  Receipt Date: 20130918
  Transmission Date: 20140515
  Serious: Yes (Hospitalization)
  Sender: FDA-Public Use
  Company Number: US-ABBVIE-13P-163-1105898-00

PATIENT
  Age: 80 Year
  Sex: Female

DRUGS (8)
  1. HUMIRA [Suspect]
     Indication: CROHN^S DISEASE
  2. BAYER ASPIRIN [Concomitant]
     Indication: PROPHYLAXIS
  3. CLARITIN [Concomitant]
     Indication: SEASONAL ALLERGY
  4. CARTIA [Concomitant]
     Indication: ANGINA PECTORIS
  5. SIMVASTATIN [Concomitant]
     Indication: PRODUCT USED FOR UNKNOWN INDICATION
  6. SIMVASTATIN [Concomitant]
  7. RANITIDINE [Concomitant]
     Indication: PRODUCT USED FOR UNKNOWN INDICATION
  8. DARVINATINE [Concomitant]
     Indication: GASTRIC DISORDER

REACTIONS (2)
  - Intervertebral disc protrusion [Recovering/Resolving]
  - Injection site swelling [Recovered/Resolved]
